FAERS Safety Report 8006264-X (Version None)
Quarter: 2011Q4

REPORT INFORMATION
  Report Type: 
  Country: None (occurrence: None)
  Receive Date: 20111226
  Receipt Date: 20111215
  Transmission Date: 20120403
  Serious: Yes (Hospitalization, Other)
  Sender: FDA-Public Use
  Company Number: PHFR2011GB01821

PATIENT
  Sex: Female

DRUGS (1)
  1. CLOZARIL [Suspect]
     Indication: SCHIZOPHRENIA
     Dosage: UNK MG, UNK
     Route: 048
     Dates: start: 20071129

REACTIONS (2)
  - SYSTEMIC LUPUS ERYTHEMATOSUS [None]
  - ANAEMIA [None]
